FAERS Safety Report 15112452 (Version 2)
Quarter: 2018Q3

REPORT INFORMATION
  Report Type: Report from Study
  Country: IT (occurrence: IT)
  Receive Date: 20180705
  Receipt Date: 20180817
  Transmission Date: 20181010
  Serious: Yes (Hospitalization, Other)
  Sender: FDA-Public Use
  Company Number: IT-SA-2018SA168605

PATIENT
  Age: 78 Year
  Sex: Female
  Weight: 109 kg

DRUGS (7)
  1. SIMVASTATIN. [Interacting]
     Active Substance: SIMVASTATIN
  2. ENOXAPARIN SODIUM. [Suspect]
     Active Substance: ENOXAPARIN SODIUM
  3. METOPROLOL SALT NOT SPECIFIED [Interacting]
     Active Substance: METOPROLOL
     Dosage: UNK
  4. RAMIPRIL. [Interacting]
     Active Substance: RAMIPRIL
     Dosage: UNK
     Route: 048
  5. ACETYLSALICYLIC ACID [Interacting]
     Active Substance: ASPIRIN
     Dosage: UNK
  6. INFLUENZA VACCINE (TRIVALENT) [Interacting]
     Active Substance: INFLUENZA VIRUS VACCINE TRIVALENT TYPE A+B
  7. ITRACONAZOLE. [Interacting]
     Active Substance: ITRACONAZOLE
     Dosage: UNK

REACTIONS (3)
  - Rhabdomyolysis [Unknown]
  - Drug interaction [Unknown]
  - Skin candida [Unknown]
